FAERS Safety Report 18378242 (Version 1)
Quarter: 2020Q4

REPORT INFORMATION
  Report Type: Spontaneous
  Country: CH (occurrence: CH)
  Receive Date: 20201013
  Receipt Date: 20201013
  Transmission Date: 20210114
  Serious: Yes (Other)
  Sender: FDA-Public Use
  Company Number: CH-TEVA-2020-CH-1837358

PATIENT
  Age: 27 Year
  Sex: Female

DRUGS (7)
  1. CYCLOPHOSPHAMIDE. [Suspect]
     Active Substance: CYCLOPHOSPHAMIDE
     Indication: BONE MARROW CONDITIONING REGIMEN
     Route: 065
  2. MYCOPHENOLATE MOFETIL. [Suspect]
     Active Substance: MYCOPHENOLATE MOFETIL
     Indication: IMMUNOSUPPRESSANT DRUG THERAPY
     Route: 065
  3. AMPHOTERICIN-B [Suspect]
     Active Substance: AMPHOTERICIN B
     Indication: CUTANEOUS MUCORMYCOSIS
     Route: 061
  4. AMPHOTERICIN-B [Suspect]
     Active Substance: AMPHOTERICIN B
     Indication: CUTANEOUS MUCORMYCOSIS
     Route: 065
  5. ANTILYMPHOCYTIC SERUM [Suspect]
     Active Substance: THYMOCYTE IMMUNE GLOBULIN NOS
     Indication: BONE MARROW CONDITIONING REGIMEN
     Route: 065
  6. CICLOSPORIN [Suspect]
     Active Substance: CYCLOSPORINE
     Indication: IMMUNOSUPPRESSANT DRUG THERAPY
     Route: 065
  7. POSACONAZOLE [Suspect]
     Active Substance: POSACONAZOLE
     Indication: CUTANEOUS MUCORMYCOSIS
     Route: 065

REACTIONS (3)
  - Cutaneous mucormycosis [Not Recovered/Not Resolved]
  - Disseminated mucormycosis [Not Recovered/Not Resolved]
  - Drug ineffective [Unknown]
